FAERS Safety Report 9031558 (Version 1)
Quarter: 2013Q1

REPORT INFORMATION
  Report Type: Spontaneous
  Country: US (occurrence: US)
  Receive Date: 20130124
  Receipt Date: 20130124
  Transmission Date: 20140127
  Serious: No
  Sender: FDA-Public Use
  Company Number: US-PFIZER INC-2013028622

PATIENT
  Age: 83 Year
  Sex: Female
  Weight: 81.63 kg

DRUGS (2)
  1. EMERGEN-C [Suspect]
     Indication: ASTHENIA
     Dosage: UNK, AS NEEDED
     Route: 048
     Dates: start: 201211, end: 201211
  2. ADVIL [Suspect]
     Indication: ARTHRALGIA
     Dosage: UNK
     Route: 048
     Dates: end: 2012

REACTIONS (4)
  - Expired drug administered [Unknown]
  - Dermatitis atopic [Recovering/Resolving]
  - Rash [Recovering/Resolving]
  - Musculoskeletal disorder [Unknown]
